FAERS Safety Report 7428544-9 (Version None)
Quarter: 2011Q2

REPORT INFORMATION
  Report Type: 
  Country: None (occurrence: None)
  Receive Date: 20110412
  Receipt Date: 20110328
  Transmission Date: 20111010
  Serious: Yes (Other)
  Sender: FDA-Public Use
  Company Number: 2011SP014158

PATIENT
  Age: 72 Year
  Sex: Female

DRUGS (2)
  1. NASONEX [Suspect]
     Indication: SINUSITIS
     Dosage: 50 MCG;QD;NAS
     Route: 045
  2. ZYRTEC [Concomitant]

REACTIONS (3)
  - ASTHMA [None]
  - ANOSMIA [None]
  - AGEUSIA [None]
